FAERS Safety Report 8399457-3 (Version None)
Quarter: 2012Q1

REPORT INFORMATION
  Report Type: 
  Country: None (occurrence: None)
  Receive Date: 20120323
  Receipt Date: 20110407
  Transmission Date: 20120608
  Serious: Yes (Hospitalization, Disabling)
  Sender: FDA-Public Use
  Company Number: 163-21880-11012483

PATIENT
  Age: 77 Year
  Sex: Male
  Weight: 82.1011 kg

DRUGS (9)
  1. VELCADE [Concomitant]
  2. DEXAMETHASONE [Concomitant]
  3. LUNESTA [Concomitant]
  4. REVLIMID [Suspect]
     Indication: MULTIPLE MYELOMA
     Dosage: 25 MG, 1 IN 1 D, PO ; 25 MG, DAILY DAYS 1-14 OF CYCLE THEN OFF 2, PO
     Route: 048
     Dates: start: 20101230, end: 20110112
  5. REVLIMID [Suspect]
     Indication: MULTIPLE MYELOMA
     Dosage: 25 MG, 1 IN 1 D, PO ; 25 MG, DAILY DAYS 1-14 OF CYCLE THEN OFF 2, PO
     Route: 048
     Dates: start: 20090301
  6. DOXIL [Concomitant]
  7. POTASSIUM CHLORIDE [Concomitant]
  8. VITAMIN B12 [Concomitant]
  9. PRILOSEC [Concomitant]

REACTIONS (2)
  - DISORIENTATION [None]
  - PYREXIA [None]
